FAERS Safety Report 22083395 (Version 2)
Quarter: 2023Q2

REPORT INFORMATION
  Report Type: Spontaneous
  Country: GB (occurrence: GB)
  Receive Date: 20230310
  Receipt Date: 20230403
  Transmission Date: 20230722
  Serious: Yes (Hospitalization)
  Sender: FDA-Public Use
  Company Number: GB-AUROBINDO-AUR-APL-2023-010755

PATIENT
  Sex: Male

DRUGS (5)
  1. ACETAMINOPHEN [Suspect]
     Active Substance: ACETAMINOPHEN
     Indication: Pyrexia
     Dosage: UNK
     Route: 065
  2. ACYCLOVIR [Concomitant]
     Active Substance: ACYCLOVIR
     Indication: Encephalitis
     Dosage: 600 MILLIGRAM, 3 TIMES A DAY
     Route: 042
  3. CIPROFLOXACIN [Concomitant]
     Active Substance: CIPROFLOXACIN
     Indication: Endocarditis
     Dosage: 750 MILLIGRAM, TWO TIMES A DAY
     Route: 048
  4. CEFTRIAXONE [Concomitant]
     Active Substance: CEFTRIAXONE
     Indication: Encephalitis
     Dosage: 2 GRAM, TWO TIMES A DAY
     Route: 042
  5. GENTAMICIN [Concomitant]
     Active Substance: GENTAMICIN
     Indication: Endocarditis
     Dosage: 5 MILLIGRAM/KILOGRAM, ONCE A DAY
     Route: 042

REACTIONS (1)
  - Drug ineffective [Unknown]
